FAERS Safety Report 9121317 (Version 2)
Quarter: 2014Q2

REPORT INFORMATION
  Report Type: Report from Study
  Country: FR (occurrence: FR)
  Receive Date: 20130225
  Receipt Date: 20140630
  Transmission Date: 20141212
  Serious: Yes (Hospitalization)
  Sender: FDA-Public Use
  Company Number: FR-ROCHE-772045

PATIENT
  Age: 47 Year
  Sex: Male
  Weight: 83 kg

DRUGS (6)
  1. DACARBAZINE [Suspect]
     Indication: METASTATIC MALIGNANT MELANOMA
     Route: 042
  2. CIFLOX (FRANCE) [Concomitant]
  3. AUGMENTIN [Concomitant]
     Route: 065
  4. VANCOMYCIN [Concomitant]
     Route: 065
  5. AMIKLIN [Concomitant]
     Route: 065
     Dates: start: 20101201, end: 20101204
  6. AMIKLIN [Concomitant]
     Route: 065
     Dates: start: 20101211, end: 20101216

REACTIONS (1)
  - Bone marrow failure [Recovered/Resolved]
